FAERS Safety Report 21010512 (Version 2)
Quarter: 2022Q2

REPORT INFORMATION
  Report Type: Spontaneous
  Country: CA (occurrence: CA)
  Receive Date: 20220627
  Receipt Date: 20220630
  Transmission Date: 20220721
  Serious: Yes (Death, Life-Threatening, Hospitalization, Other)
  Sender: FDA-Public Use
  Company Number: CA-ELI_LILLY_AND_COMPANY-CA202206010895

PATIENT
  Age: 22 Year
  Sex: Female

DRUGS (34)
  1. OLANZAPINE [Suspect]
     Active Substance: OLANZAPINE
     Indication: Vomiting
     Dosage: 5 MG, 1 EVERY 1 DAYS
     Route: 065
  2. OLANZAPINE [Suspect]
     Active Substance: OLANZAPINE
     Indication: Nausea
     Dosage: UNK, UNKNOWN
     Route: 048
  3. OLANZAPINE [Suspect]
     Active Substance: OLANZAPINE
     Indication: Cyclic vomiting syndrome
  4. OLANZAPINE [Suspect]
     Active Substance: OLANZAPINE
     Indication: Anxiety
  5. OLANZAPINE [Suspect]
     Active Substance: OLANZAPINE
     Indication: Cannabinoid hyperemesis syndrome
  6. OLANZAPINE [Suspect]
     Active Substance: OLANZAPINE
     Indication: Electrocardiogram QT prolonged
  7. ONDANSETRON [Suspect]
     Active Substance: ONDANSETRON
     Indication: Vomiting
     Dosage: 8 MG, 1 EVERY 1 DAYS
     Route: 065
  8. ONDANSETRON [Suspect]
     Active Substance: ONDANSETRON
     Indication: Nausea
     Dosage: UNK UNK, UNKNOWN
     Route: 048
  9. ONDANSETRON [Suspect]
     Active Substance: ONDANSETRON
     Indication: Cyclic vomiting syndrome
     Dosage: UNK, UNKNOWN
     Route: 042
  10. ONDANSETRON [Suspect]
     Active Substance: ONDANSETRON
     Indication: Cannabinoid hyperemesis syndrome
  11. ONDANSETRON [Suspect]
     Active Substance: ONDANSETRON
     Indication: Electrocardiogram QT prolonged
  12. HALOPERIDOL [Suspect]
     Active Substance: HALOPERIDOL
     Indication: Cyclic vomiting syndrome
     Dosage: UNK, UNKNOWN
     Route: 042
  13. HALOPERIDOL [Suspect]
     Active Substance: HALOPERIDOL
     Indication: Anxiety
     Dosage: UNK, UNKNOWN
     Route: 048
  14. HALOPERIDOL [Suspect]
     Active Substance: HALOPERIDOL
     Indication: Nausea
  15. HALOPERIDOL [Suspect]
     Active Substance: HALOPERIDOL
     Indication: Cannabinoid hyperemesis syndrome
  16. HALOPERIDOL [Suspect]
     Active Substance: HALOPERIDOL
     Indication: Electrocardiogram QT prolonged
  17. HALOPERIDOL [Suspect]
     Active Substance: HALOPERIDOL
     Indication: Cyclic vomiting syndrome
  18. DIMENHYDRINATE [Concomitant]
     Active Substance: DIMENHYDRINATE
     Indication: Vomiting
     Dosage: 50 MG
     Route: 065
  19. DIMENHYDRINATE [Concomitant]
     Active Substance: DIMENHYDRINATE
     Indication: Nausea
  20. GRAVOL [Concomitant]
     Active Substance: DIMENHYDRINATE
     Indication: Cannabinoid hyperemesis syndrome
     Dosage: 50 MG
     Route: 048
  21. GRAVOL [Concomitant]
     Active Substance: DIMENHYDRINATE
     Indication: Nausea
  22. GRAVOL [Concomitant]
     Active Substance: DIMENHYDRINATE
     Indication: Cyclic vomiting syndrome
  23. LORAZEPAM [Concomitant]
     Active Substance: LORAZEPAM
     Indication: Anxiety
     Route: 065
  24. LORAZEPAM [Concomitant]
     Active Substance: LORAZEPAM
     Indication: Cannabinoid hyperemesis syndrome
  25. LORAZEPAM [Concomitant]
     Active Substance: LORAZEPAM
     Indication: Nausea
  26. LORAZEPAM [Concomitant]
     Active Substance: LORAZEPAM
     Indication: Cyclic vomiting syndrome
  27. POTASSIUM PHOSPHATE, DIBASIC [Concomitant]
     Active Substance: POTASSIUM PHOSPHATE, DIBASIC
     Indication: Drug therapy
     Dosage: 6.8 MILLIEQUIVALENTS,UNKNOWN
     Route: 042
  28. POTASSIUM PHOSPHATE, DIBASIC [Concomitant]
     Active Substance: POTASSIUM PHOSPHATE, DIBASIC
     Indication: Vomiting
  29. KETOROLAC [Concomitant]
     Active Substance: KETOROLAC TROMETHAMINE
     Indication: Vomiting
     Dosage: UNK, UNKNOWN
     Route: 065
  30. METOCLOPRAMIDE [Concomitant]
     Active Substance: METOCLOPRAMIDE
     Indication: Vomiting
     Dosage: UNK, UNKNOWN
     Route: 065
  31. SODIUM CHLORIDE [Concomitant]
     Active Substance: SODIUM CHLORIDE
     Indication: Drug therapy
     Dosage: UNK, UNKNOWN
     Route: 065
  32. SODIUM CHLORIDE [Concomitant]
     Active Substance: SODIUM CHLORIDE
     Indication: Fluid replacement
  33. BORIC ACID [Concomitant]
     Active Substance: BORIC ACID
     Indication: Product used for unknown indication
  34. CANNABIS SATIVA FLOWERING TOP [Concomitant]
     Active Substance: CANNABIS SATIVA FLOWERING TOP
     Indication: Product used for unknown indication

REACTIONS (23)
  - Apallic syndrome [Fatal]
  - Blood creatinine increased [Fatal]
  - Blood phosphorus decreased [Fatal]
  - Blood sodium decreased [Fatal]
  - Bradycardia [Fatal]
  - Brain death [Fatal]
  - Brain injury [Fatal]
  - Cardiac arrest [Fatal]
  - Electrocardiogram QT prolonged [Fatal]
  - Hypertension [Fatal]
  - Hypokalaemia [Fatal]
  - Hypoxic-ischaemic encephalopathy [Fatal]
  - Mucosal dryness [Fatal]
  - Myocardial reperfusion injury [Fatal]
  - Off label use [Fatal]
  - Pneumonia [Fatal]
  - Pulmonary embolism [Fatal]
  - Pulmonary oedema [Fatal]
  - Torsade de pointes [Fatal]
  - Ventricular fibrillation [Fatal]
  - Arrhythmia [Fatal]
  - Cardio-respiratory arrest [Fatal]
  - Ventricular arrhythmia [Fatal]
